FAERS Safety Report 8485009-3 (Version None)
Quarter: 2012Q3

REPORT INFORMATION
  Report Type: 
  Country: None (occurrence: None)
  Receive Date: 20120703
  Receipt Date: 20120628
  Transmission Date: 20120928
  Serious: Yes (Other)
  Sender: FDA-Public Use
  Company Number: US-BAYER-2012-006039

PATIENT
  Age: 41 Year
  Sex: Female

DRUGS (8)
  1. BACLOFEN [Concomitant]
  2. GEMFIBROZIL [Concomitant]
  3. LEVOTHYROXINE SODIUM [Concomitant]
  4. INTERFERON BETA-1B [Suspect]
     Indication: PROGRESSIVE RELAPSING MULTIPLE SCLEROSIS
     Dosage: 2 MIU, QOD
     Route: 058
     Dates: start: 20120116
  5. NITROGLYCERIN [Concomitant]
  6. NEURONTIN [Concomitant]
  7. LEVETIRACETAM [Concomitant]
  8. PRIMIDONE [Concomitant]

REACTIONS (7)
  - TREMOR [None]
  - FALL [None]
  - POOR QUALITY SLEEP [None]
  - MASS [None]
  - PAIN [None]
  - LOSS OF CONSCIOUSNESS [None]
  - DYSARTHRIA [None]
